FAERS Safety Report 14208530 (Version 1)
Quarter: 2017Q4

REPORT INFORMATION
  Report Type: Spontaneous
  Country: US (occurrence: None)
  Receive Date: 20171120
  Receipt Date: 20171120
  Transmission Date: 20180321
  Serious: Yes (Death)
  Sender: FDA-Public Use
  Company Number: None

PATIENT
  Age: 80 Year
  Sex: Male

DRUGS (28)
  1. IBUPROFEN. [Concomitant]
     Active Substance: IBUPROFEN
  2. DONEPEZIL. [Concomitant]
     Active Substance: DONEPEZIL
  3. FINASTERIDE. [Concomitant]
     Active Substance: FINASTERIDE
  4. DULERA [Concomitant]
     Active Substance: FORMOTEROL FUMARATE DIHYDRATE\MOMETASONE FUROATE
  5. BISAC-EVAN [Concomitant]
  6. FLEET ENEMA [Concomitant]
     Active Substance: SODIUM PHOSPHATE, DIBASIC\SODIUM PHOSPHATE, MONOBASIC
  7. AMPICILLIN [Concomitant]
     Active Substance: AMPICILLIN
  8. TAMSULOSIN [Concomitant]
     Active Substance: TAMSULOSIN
  9. MUL OF MAG [Concomitant]
  10. FLUOURIDE [Concomitant]
  11. ROPINROLE HYDROCHLORIDE [Concomitant]
     Active Substance: ROPINIROLE HYDROCHLORIDE
  12. PROBIOTIC [Concomitant]
     Active Substance: PROBIOTICS NOS
  13. CEFPODOXIME [Concomitant]
     Active Substance: CEFPODOXIME
  14. POLYETH GLYC [Concomitant]
     Active Substance: POLYETHYLENE GLYCOLS
  15. VENTOLIN [Concomitant]
     Active Substance: ALBUTEROL SULFATE
  16. ENTACAPONE. [Concomitant]
     Active Substance: ENTACAPONE
  17. DIVALPROEX [Concomitant]
     Active Substance: DIVALPROEX SODIUM
  18. CARB/LEVO [Concomitant]
     Active Substance: CARBIDOPA\LEVODOPA
  19. NUPLAZID [Suspect]
     Active Substance: PIMAVANSERIN TARTRATE
     Indication: PARKINSON^S DISEASE
     Dosage: DOSE - 2 TABS (34MG) PO
     Route: 048
     Dates: start: 201608, end: 20171119
  20. ACETAMIN [Concomitant]
     Active Substance: ACETAMINOPHEN
  21. MIRTAZAPINE. [Concomitant]
     Active Substance: MIRTAZAPINE
  22. OMEPRAZOLE. [Concomitant]
     Active Substance: OMEPRAZOLE
  23. MYSTOP [Concomitant]
  24. MIRALAX [Concomitant]
     Active Substance: POLYETHYLENE GLYCOL 3350
  25. KCL/D5W/NACL [Concomitant]
  26. DOMEBORO [Concomitant]
     Active Substance: ALUMINUM ACETATE
  27. VITAMIN D3 [Concomitant]
     Active Substance: CHOLECALCIFEROL
  28. LEVAQUIN [Concomitant]
     Active Substance: LEVOFLOXACIN

REACTIONS (1)
  - Death [None]

NARRATIVE: CASE EVENT DATE: 20171119
